FAERS Safety Report 25015138 (Version 1)
Quarter: 2025Q1

REPORT INFORMATION
  Report Type: Report from Study
  Country: CA (occurrence: CA)
  Receive Date: 20250226
  Receipt Date: 20250226
  Transmission Date: 20250409
  Serious: Yes (Other)
  Sender: UCB
  Company Number: CA-UCBSA-2024001861

PATIENT
  Age: 42 Year
  Sex: Female

DRUGS (1)
  1. CERTOLIZUMAB PEGOL [Suspect]
     Active Substance: CERTOLIZUMAB PEGOL
     Indication: Ankylosing spondylitis
     Dosage: 400 MILLIGRAM, EV 2 WEEKS(QOW)
     Route: 058
     Dates: start: 20240106

REACTIONS (15)
  - Ankylosing spondylitis [Unknown]
  - Nasopharyngitis [Unknown]
  - Nasal congestion [Not Recovered/Not Resolved]
  - Secretion discharge [Not Recovered/Not Resolved]
  - Cough [Not Recovered/Not Resolved]
  - Oropharyngeal pain [Unknown]
  - Sinusitis [Unknown]
  - Feeling abnormal [Unknown]
  - Bone pain [Unknown]
  - Arthralgia [Unknown]
  - Pyrexia [Unknown]
  - Skin burning sensation [Unknown]
  - Pain of skin [Unknown]
  - Erythema [Unknown]
  - Eczema [Unknown]

NARRATIVE: CASE EVENT DATE: 20240101
